FAERS Safety Report 18942370 (Version 2)
Quarter: 2021Q1

REPORT INFORMATION
  Report Type: Spontaneous
  Country: US (occurrence: US)
  Receive Date: 20210225
  Receipt Date: 20210302
  Transmission Date: 20210420
  Serious: Yes (Other)
  Sender: FDA-Public Use
  Company Number: US-PFIZER INC-2021169355

PATIENT
  Age: 37 Year
  Sex: Male

DRUGS (2)
  1. TRIAMCINOLONE [Suspect]
     Active Substance: TRIAMCINOLONE
     Indication: BACK PAIN
     Dosage: UNK (L5?S1 INTERLAMINAR ESI)
  2. LIDOCAINE HCL [Suspect]
     Active Substance: LIDOCAINE HYDROCHLORIDE
     Indication: BACK PAIN
     Dosage: UNK (L5?S1 INTERLAMINAR ESI)

REACTIONS (8)
  - Intracranial hypotension [Recovering/Resolving]
  - Status epilepticus [Recovered/Resolved]
  - Cerebrovascular accident [Recovered/Resolved]
  - Cerebral infarction [Recovering/Resolving]
  - Muscular weakness [Recovering/Resolving]
  - Pain [Recovering/Resolving]
  - Post lumbar puncture syndrome [Recovering/Resolving]
  - Off label use [Unknown]
